FAERS Safety Report 18715649 (Version 4)
Quarter: 2021Q3

REPORT INFORMATION
  Report Type: Report from Study
  Country: US (occurrence: US)
  Receive Date: 20210108
  Receipt Date: 20210813
  Transmission Date: 20211014
  Serious: No
  Sender: FDA-Public Use
  Company Number: US-ACADIA PHARMACEUTICALS INC.-ACA-2020-PIM-004028

PATIENT
  Age: 79 Year
  Sex: Male
  Weight: 68 kg

DRUGS (18)
  1. RYTARY [Concomitant]
     Active Substance: CARBIDOPA\LEVODOPA
     Dosage: 48.75?195 MG 2 RYTARY 3 TIMES A DAY
  2. RIBOFLAVIN [Concomitant]
     Active Substance: RIBOFLAVIN
     Dosage: 100 MILLIGRAM (B2)
  3. ZYRTEC [Concomitant]
     Active Substance: CETIRIZINE HYDROCHLORIDE
     Indication: HYPERSENSITIVITY
  4. NUPLAZID [Suspect]
     Active Substance: PIMAVANSERIN TARTRATE
     Indication: DELUSION
  5. NUPLAZID [Suspect]
     Active Substance: PIMAVANSERIN TARTRATE
     Indication: DEMENTIA
  6. ARICEPT [Concomitant]
     Active Substance: DONEPEZIL HYDROCHLORIDE
     Indication: MEMORY IMPAIRMENT
     Dosage: 10 MILLIGRAM, BID (2 AT BEDTIME)
  7. LOVASTATIN. [Concomitant]
     Active Substance: LOVASTATIN
  8. SUCRALFATE. [Concomitant]
     Active Substance: SUCRALFATE
  9. PANTOPRAZOLE SODIUM. [Concomitant]
     Active Substance: PANTOPRAZOLE SODIUM
     Indication: GASTRIC DISORDER
     Dosage: EC 40 MG
  10. FUROSEMIDE. [Concomitant]
     Active Substance: FUROSEMIDE
     Dosage: 40 MILLIGRAM, BID (1 AT 7AM AND 1 AT 3PM)
  11. CLONIDINE HCL [Concomitant]
     Active Substance: CLONIDINE HYDROCHLORIDE
     Dosage: 1 MILLIGRAM, BID (2 AT 7PM)
  12. WELLBUTRIN [Concomitant]
     Active Substance: BUPROPION HYDROCHLORIDE
     Dosage: 300 MILLIGRAM, QD ER XL (1 AT 7 AM)
  13. NUPLAZID [Suspect]
     Active Substance: PIMAVANSERIN TARTRATE
     Indication: HALLUCINATION
  14. LEVOTHYROXINE. [Concomitant]
     Active Substance: LEVOTHYROXINE
     Dosage: 75 MICROGRAM, QD (1 AT 7 AM)
  15. NUPLAZID [Suspect]
     Active Substance: PIMAVANSERIN TARTRATE
     Indication: PARKINSON^S DISEASE PSYCHOSIS
     Dosage: 34 MILLIGRAM, QD
     Route: 048
     Dates: start: 20201210
  16. LOSARTAN POTASSIUM. [Concomitant]
     Active Substance: LOSARTAN POTASSIUM
     Indication: BLOOD PRESSURE ABNORMAL
     Dosage: 50 MILLIGRAM, BID (1 @ NOON AND 1 AT 7 PM )
  17. LOVASTIN [Concomitant]
     Active Substance: LOVASTATIN
     Indication: BLOOD CHOLESTEROL
     Dosage: 40 MILLIGRAM, QD (AT BEDTIME)
  18. THERMOTABS [Concomitant]
     Dosage: UNK, BID (2 AT 9 AM AND 1 AT NOON)

REACTIONS (9)
  - Speech disorder [Unknown]
  - Agitation [Unknown]
  - Delusion [Unknown]
  - Disorientation [Unknown]
  - Decreased eye contact [Unknown]
  - Confusional state [Unknown]
  - Feeling hot [Unknown]
  - Loss of personal independence in daily activities [Unknown]
  - Depression [Unknown]

NARRATIVE: CASE EVENT DATE: 202012
